FAERS Safety Report 8229773-7 (Version None)
Quarter: 2012Q1

REPORT INFORMATION
  Report Type: 
  Country: None (occurrence: None)
  Receive Date: 20120322
  Receipt Date: 20120314
  Transmission Date: 20120608
  Serious: Yes (Other)
  Sender: FDA-Public Use
  Company Number: DE-ROCHE-1050116

PATIENT
  Sex: Female

DRUGS (1)
  1. COPEGUS [Suspect]
     Indication: HEPATITIS C

REACTIONS (5)
  - AUTOIMMUNE THYROIDITIS [None]
  - CARPAL TUNNEL SYNDROME [None]
  - CARDIAC FIBRILLATION [None]
  - PAIN [None]
  - PALPITATIONS [None]
